FAERS Safety Report 15850930 (Version 1)
Quarter: 2019Q1

REPORT INFORMATION
  Report Type: Spontaneous
  Country: FR (occurrence: FR)
  Receive Date: 20190121
  Receipt Date: 20190121
  Transmission Date: 20190417
  Serious: Yes (Life-Threatening, Hospitalization, Other)
  Sender: FDA-Public Use
  Company Number: FR-AUROBINDO-AUR-APL-2019-003363

PATIENT
  Age: 54 Year
  Sex: Female

DRUGS (6)
  1. IXPRIM [Suspect]
     Active Substance: ACETAMINOPHEN\TRAMADOL HYDROCHLORIDE
     Indication: DENTAL CARE
     Dosage: UNK
     Route: 065
  2. SPIFEN [Suspect]
     Active Substance: IBUPROFEN
     Indication: TOOTH ABSCESS
     Dosage: UNK
     Route: 065
  3. SIMVASTATINE [Concomitant]
     Active Substance: SIMVASTATIN
     Indication: ARTERIAL STENT INSERTION
     Dosage: 1 DOSAGE FORM, DAILY
     Route: 048
     Dates: start: 20160411
  4. CLOPIDOGREL [Suspect]
     Active Substance: CLOPIDOGREL BISULFATE
     Indication: ARTERIAL STENT INSERTION
     Dosage: 1 DOSAGE FORM, DAILY
     Route: 048
     Dates: start: 20160411
  5. SPIFEN [Suspect]
     Active Substance: IBUPROFEN
     Indication: TOOTHACHE
     Dosage: 2 DOSAGE FORM, DAILY
     Route: 048
     Dates: start: 20181120, end: 20181127
  6. KARDEGIC [Suspect]
     Active Substance: ASPIRIN DL-LYSINE
     Indication: ARTERIAL STENT INSERTION
     Dosage: 1 DOSAGE FORM, DAILY
     Route: 048
     Dates: start: 20160411

REACTIONS (3)
  - Melaena [Recovering/Resolving]
  - Fatigue [Recovering/Resolving]
  - Gastrointestinal haemorrhage [Recovering/Resolving]

NARRATIVE: CASE EVENT DATE: 20181128
